FAERS Safety Report 9950109 (Version 2)
Quarter: 2014Q1

REPORT INFORMATION
  Report Type: Report from Study
  Country: US (occurrence: US)
  Receive Date: 20140304
  Receipt Date: 20140304
  Transmission Date: 20141002
  Serious: No
  Sender: FDA-Public Use
  Company Number: US-ABBVIE-13P-163-1052534-00

PATIENT
  Age: 54 Year
  Sex: Female
  Weight: 120.31 kg

DRUGS (14)
  1. HUMIRA [Suspect]
     Indication: RHEUMATOID ARTHRITIS
     Dates: start: 2010, end: 201208
  2. HUMIRA [Suspect]
     Dates: start: 201201
  3. GABAPENTIN [Concomitant]
     Indication: NEUROPATHY PERIPHERAL
  4. AMLODIPINE DESYLAT [Concomitant]
     Indication: HYPERTENSION
  5. METHOTREXATE [Concomitant]
     Indication: RHEUMATOID ARTHRITIS
  6. CYMBALTA [Concomitant]
     Indication: DEPRESSION
  7. HYDROMORPHONE HCL [Concomitant]
     Indication: PAIN
  8. PANTOPRAZOLE SODIUM [Concomitant]
     Indication: GASTROOESOPHAGEAL REFLUX DISEASE
  9. TYLENOL [Concomitant]
     Indication: HEADACHE
  10. TEMAZEPAM [Concomitant]
     Indication: INSOMNIA
  11. VITAMIN D [Concomitant]
     Indication: VITAMIN SUPPLEMENTATION
  12. MSM [Concomitant]
     Indication: SUPPLEMENTATION THERAPY
  13. MULTIVITAMIN [Concomitant]
     Indication: VITAMIN SUPPLEMENTATION
  14. OMEGA FISH OIL [Concomitant]
     Indication: NUTRITIONAL SUPPLEMENTATION

REACTIONS (11)
  - Therapeutic response unexpected [Recovered/Resolved]
  - Pain [Not Recovered/Not Resolved]
  - Pain [Not Recovered/Not Resolved]
  - Neuropathy peripheral [Not Recovered/Not Resolved]
  - Arthralgia [Not Recovered/Not Resolved]
  - Pre-existing condition improved [Recovered/Resolved with Sequelae]
  - Arthralgia [Unknown]
  - Neuralgia [Unknown]
  - Vulvovaginal pain [Not Recovered/Not Resolved]
  - Metrorrhagia [Not Recovered/Not Resolved]
  - Oropharyngeal pain [Not Recovered/Not Resolved]
